FAERS Safety Report 5064314-7 (Version None)
Quarter: 2006Q3

REPORT INFORMATION
  Report Type: 
  Country: None (occurrence: None)
  Receive Date: 20060728
  Receipt Date: 20060713
  Transmission Date: 20061208
  Serious: Yes (Other)
  Sender: FDA-Public Use
  Company Number: PHHO2006BR11533

PATIENT
  Age: 10 Year
  Sex: Male

DRUGS (5)
  1. TEGRETOL [Suspect]
     Indication: CEREBRAL DISORDER
     Dosage: 7 ML/DAY
     Route: 048
     Dates: start: 20000101
  2. TEGRETOL [Suspect]
     Dosage: 17 ML/DAY
     Route: 048
  3. ELIDEL [Suspect]
     Route: 061
  4. TRILEPTAL [Suspect]
     Indication: CEREBRAL DISORDER
     Dosage: 5 ML, BID
     Route: 048
  5. KETOTIFEN [Concomitant]

REACTIONS (8)
  - BURNING SENSATION [None]
  - DERMATITIS ATOPIC [None]
  - DYSKINESIA [None]
  - HEADACHE [None]
  - NAUSEA [None]
  - PRURITUS [None]
  - SKIN HAEMORRHAGE [None]
  - SOMNOLENCE [None]
